FAERS Safety Report 7052092-1 (Version None)
Quarter: 2010Q4

REPORT INFORMATION
  Report Type: 
  Country: None (occurrence: None)
  Receive Date: 20101018
  Receipt Date: 20101018
  Transmission Date: 20110411
  Serious: Yes (Hospitalization)
  Sender: FDA-Public Use
  Company Number: None

PATIENT
  Age: 21 Year
  Sex: Male
  Weight: 69 kg

DRUGS (2)
  1. ACETAMINOPHEN [Suspect]
     Indication: DEPRESSION
     Dosage: UNKNOWN TAB ONCE PO
     Route: 048
     Dates: start: 20100709, end: 20100709
  2. DEXTROMETHORPHAN HYDROBROMIDE [Suspect]
     Indication: DEPRESSION
     Dosage: UNKNOWN ML ONCE PO
     Route: 048
     Dates: start: 20100709, end: 20100709

REACTIONS (4)
  - BLOOD ETHANOL INCREASED [None]
  - SEDATION [None]
  - SUICIDE ATTEMPT [None]
  - UNRESPONSIVE TO STIMULI [None]
